FAERS Safety Report 9253206 (Version 1)
Quarter: 2013Q2

REPORT INFORMATION
  Report Type: Spontaneous
  Country: US (occurrence: US)
  Receive Date: 20130424
  Receipt Date: 20130424
  Transmission Date: 20140414
  Serious: No
  Sender: FDA-Public Use
  Company Number: US-B.I. PHARMACEUTICALS,INC./RIDGEFIELD-2013-BI-10617BP

PATIENT
  Age: 67 Year
  Sex: Male
  Weight: 73 kg

DRUGS (4)
  1. ZANTAC COOL MINT (TABLETS) [Suspect]
     Indication: DYSPEPSIA
     Dosage: 150 MG
     Route: 048
     Dates: start: 20130407, end: 20130407
  2. ZOLPIDEM [Concomitant]
     Indication: SLEEP DISORDER
     Dosage: 10 MG
     Route: 048
  3. NORTRIPTYLINE [Concomitant]
     Indication: DEPRESSION
     Route: 048
  4. NORTRIPTYLINE [Concomitant]
     Indication: BLADDER SPASM

REACTIONS (2)
  - Oesophageal pain [Recovered/Resolved]
  - Dyspepsia [Recovered/Resolved]
